FAERS Safety Report 6420710-4 (Version None)
Quarter: 2009Q4

REPORT INFORMATION
  Report Type: 
  Country: None (occurrence: None)
  Receive Date: 20091029
  Receipt Date: 20091019
  Transmission Date: 20100525
  Serious: Yes (Other)
  Sender: FDA-Public Use
  Company Number: US-JNJCH-2009018773

PATIENT
  Age: 75 Year
  Sex: Male
  Weight: 68 kg

DRUGS (4)
  1. POLYSPORIN OINTMENT [Suspect]
     Indication: SURGERY
     Dosage: TEXT:2 FINGERS TIP COVERING 2X2.5^ ONCE DAILY
     Route: 047
  2. DARVON [Concomitant]
     Indication: PAIN
     Dosage: TEXT:100 MG 2 PILLS ONCE DAILY
     Route: 065
  3. ACETAMINOPHEN [Concomitant]
     Indication: PAIN
     Dosage: TEXT:500 MG 2 PILLS TWICE DAILY
     Route: 065
  4. LOVASTATIN [Concomitant]
     Indication: BLOOD CHOLESTEROL INCREASED
     Dosage: TEXT:UNSPECIFIED ONCE DAILY
     Route: 065

REACTIONS (3)
  - ACCIDENTAL EXPOSURE [None]
  - PRODUCT QUALITY ISSUE [None]
  - VISION BLURRED [None]
